FAERS Safety Report 19235221 (Version 1)
Quarter: 2021Q2

REPORT INFORMATION
  Report Type: Spontaneous
  Country: US (occurrence: US)
  Receive Date: 20210509
  Receipt Date: 20210509
  Transmission Date: 20210717
  Serious: No
  Sender: FDA-Public Use
  Company Number: US-SA-2021SA150563

PATIENT

DRUGS (3)
  1. CEREZYME [Suspect]
     Active Substance: IMIGLUCERASE
  2. FABRAZYME [Suspect]
     Active Substance: AGALSIDASE BETA
  3. LUMIZYME [Suspect]
     Active Substance: ALGLUCOSIDASE ALFA

REACTIONS (1)
  - Product temperature excursion issue [Unknown]
